FAERS Safety Report 7820267-7 (Version None)
Quarter: 2011Q4

REPORT INFORMATION
  Report Type: 
  Country: None (occurrence: None)
  Receive Date: 20111012
  Receipt Date: 20111005
  Transmission Date: 20120403
  Serious: Yes (Hospitalization)
  Sender: FDA-Public Use
  Company Number: DSA_47462_2011

PATIENT
  Sex: Male
  Weight: 44.9061 kg

DRUGS (21)
  1. NORVASC [Concomitant]
  2. MAGIC MOUTHWASH [Concomitant]
  3. SPIRIVA [Concomitant]
  4. ATIVAN [Suspect]
     Indication: PRODUCT USED FOR UNKNOWN INDICATION
     Dosage: (DF)
  5. CREON [Concomitant]
  6. BENZTROPINE MESYLATE [Concomitant]
  7. NOVOLOG [Concomitant]
  8. SIMVASTATIN [Concomitant]
  9. LISINOPRIL [Concomitant]
  10. ASPIRIN [Concomitant]
  11. PHOSLO [Concomitant]
  12. XENAZINE [Suspect]
     Indication: TARDIVE DYSKINESIA
     Dosage: (12.5 MG BID ORAL), 12.5 MG AM, AND 25 MG PM ORAL), (25 MG BID ORAL), (12.5 MG BID ORAL)
     Route: 048
     Dates: start: 20110624, end: 20110721
  13. XENAZINE [Suspect]
     Indication: CHOREA
     Dosage: (12.5 MG BID ORAL), 12.5 MG AM, AND 25 MG PM ORAL), (25 MG BID ORAL), (12.5 MG BID ORAL)
     Route: 048
     Dates: start: 20110624, end: 20110721
  14. XENAZINE [Suspect]
     Indication: TARDIVE DYSKINESIA
     Dosage: (12.5 MG BID ORAL), 12.5 MG AM, AND 25 MG PM ORAL), (25 MG BID ORAL), (12.5 MG BID ORAL)
     Route: 048
     Dates: start: 20110101, end: 20110101
  15. XENAZINE [Suspect]
     Indication: CHOREA
     Dosage: (12.5 MG BID ORAL), 12.5 MG AM, AND 25 MG PM ORAL), (25 MG BID ORAL), (12.5 MG BID ORAL)
     Route: 048
     Dates: start: 20110101, end: 20110101
  16. XENAZINE [Suspect]
     Indication: TARDIVE DYSKINESIA
     Dosage: (12.5 MG BID ORAL), 12.5 MG AM, AND 25 MG PM ORAL), (25 MG BID ORAL), (12.5 MG BID ORAL)
     Route: 048
     Dates: start: 20110730
  17. XENAZINE [Suspect]
     Indication: CHOREA
     Dosage: (12.5 MG BID ORAL), 12.5 MG AM, AND 25 MG PM ORAL), (25 MG BID ORAL), (12.5 MG BID ORAL)
     Route: 048
     Dates: start: 20110730
  18. XENAZINE [Suspect]
     Indication: TARDIVE DYSKINESIA
     Dosage: (12.5 MG BID ORAL), 12.5 MG AM, AND 25 MG PM ORAL), (25 MG BID ORAL), (12.5 MG BID ORAL)
     Route: 048
     Dates: start: 20110722, end: 20110729
  19. XENAZINE [Suspect]
     Indication: CHOREA
     Dosage: (12.5 MG BID ORAL), 12.5 MG AM, AND 25 MG PM ORAL), (25 MG BID ORAL), (12.5 MG BID ORAL)
     Route: 048
     Dates: start: 20110722, end: 20110729
  20. METOPROLOL TARTRATE [Concomitant]
  21. AMBIEN [Concomitant]

REACTIONS (30)
  - PARANOIA [None]
  - APHAGIA [None]
  - IRRITABILITY [None]
  - VITAMIN B12 INCREASED [None]
  - CHOREA [None]
  - CIRCADIAN RHYTHM SLEEP DISORDER [None]
  - TARDIVE DYSKINESIA [None]
  - HUNTINGTON'S DISEASE [None]
  - DELIRIUM [None]
  - DYSARTHRIA [None]
  - COGNITIVE DISORDER [None]
  - GENERAL PHYSICAL HEALTH DETERIORATION [None]
  - MYOCLONUS [None]
  - GAIT DISTURBANCE [None]
  - BLOOD CHLORIDE DECREASED [None]
  - HAEMATEMESIS [None]
  - INSOMNIA [None]
  - BLOOD CREATININE INCREASED [None]
  - BLOOD ALKALINE PHOSPHATASE INCREASED [None]
  - ABNORMAL BEHAVIOUR [None]
  - BLOOD UREA INCREASED [None]
  - BLOOD ALBUMIN DECREASED [None]
  - BLOOD THYROID STIMULATING HORMONE INCREASED [None]
  - PNEUMONIA [None]
  - HYPERGLYCAEMIA [None]
  - PULMONARY OEDEMA [None]
  - WEIGHT DECREASED [None]
  - BLOOD POTASSIUM INCREASED [None]
  - AMINO ACID LEVEL INCREASED [None]
  - THYROID DISORDER [None]
